FAERS Safety Report 7892356-2 (Version None)
Quarter: 2011Q4

REPORT INFORMATION
  Report Type: 
  Country: None (occurrence: None)
  Receive Date: 20111103
  Receipt Date: 20111103
  Transmission Date: 20120403
  Serious: Yes (Hospitalization)
  Sender: FDA-Public Use
  Company Number: None

PATIENT
  Age: 48 Year
  Sex: Female
  Weight: 60.782 kg

DRUGS (8)
  1. IPILIMUMAB [Suspect]
     Indication: METASTATIC MALIGNANT MELANOMA
     Dosage: 3 MG/KG Q3WX4, Q3M, IV
     Route: 042
     Dates: start: 20110810
  2. DILAUDID [Concomitant]
  3. SENNA-MINT WAF [Concomitant]
  4. VIACTIVE [Concomitant]
  5. METOCLOPRAMIDE HYDROCHLORIDE [Concomitant]
  6. COLACE [Concomitant]
  7. BEVACIZUMAB [Suspect]
     Indication: METASTATIC MALIGNANT MELANOMA
     Dosage: 15 MG/KG Q3W, IV
     Route: 042
     Dates: start: 20110810, end: 20111012
  8. MULTI-VITAMIN [Concomitant]

REACTIONS (8)
  - ABDOMINAL PAIN UPPER [None]
  - VOMITING [None]
  - NAUSEA [None]
  - NEOPLASM PROGRESSION [None]
  - HAEMATOCRIT DECREASED [None]
  - ERUCTATION [None]
  - TUMOUR HAEMORRHAGE [None]
  - METASTASES TO ADRENALS [None]
